FAERS Safety Report 20063138 (Version 1)
Quarter: 2021Q4

REPORT INFORMATION
  Report Type: Spontaneous
  Country: US (occurrence: None)
  Receive Date: 20211112
  Receipt Date: 20211112
  Transmission Date: 20220303
  Serious: Yes (Hospitalization)
  Sender: FDA-Public Use
  Company Number: 2021A797752

PATIENT
  Sex: Female

DRUGS (2)
  1. FARXIGA [Suspect]
     Active Substance: DAPAGLIFLOZIN PROPANEDIOL
     Indication: Type 2 diabetes mellitus
     Route: 048
  2. FARXIGA [Suspect]
     Active Substance: DAPAGLIFLOZIN PROPANEDIOL
     Indication: Cardiovascular disorder
     Route: 048

REACTIONS (5)
  - Diabetic ulcer [Unknown]
  - Fungal infection [Unknown]
  - Urinary tract infection [Unknown]
  - Urosepsis [Unknown]
  - Type 2 diabetes mellitus [Unknown]
